FAERS Safety Report 7098567-0 (Version None)
Quarter: 2010Q4

REPORT INFORMATION
  Report Type: 
  Country: None (occurrence: None)
  Receive Date: 20101112
  Receipt Date: 20101103
  Transmission Date: 20110411
  Serious: Yes (Hospitalization)
  Sender: FDA-Public Use
  Company Number: PHHO2010FR05872

PATIENT
  Sex: Female

DRUGS (2)
  1. MYCOPHENOLIC ACID [Suspect]
     Indication: RENAL TRANSPLANT
  2. NEORAL [Suspect]
     Indication: RENAL TRANSPLANT

REACTIONS (1)
  - CYTOLYTIC HEPATITIS [None]
